FAERS Safety Report 13367091 (Version 4)
Quarter: 2017Q2

REPORT INFORMATION
  Report Type: Spontaneous
  Country: JP (occurrence: JP)
  Receive Date: 20170324
  Receipt Date: 20170607
  Transmission Date: 20170830
  Serious: Yes (Other)
  Sender: FDA-Public Use
  Company Number: JP-AMGEN-JPNSP2017045111

PATIENT
  Age: 16 Year
  Sex: Female
  Weight: 43 kg

DRUGS (13)
  1. GRAN [Suspect]
     Active Substance: FILGRASTIM
     Indication: GRANULOCYTOPENIA
     Dosage: 150 MUG, QD
     Route: 042
     Dates: start: 20161104, end: 20161105
  2. CISPLATIN. [Concomitant]
     Active Substance: CISPLATIN
     Dosage: 158 MG, QD
     Route: 042
     Dates: start: 20161212, end: 20161212
  3. FLUOROURACIL. [Concomitant]
     Active Substance: FLUOROURACIL
     Indication: OSTEOSARCOMA
     Dosage: UNK
     Route: 041
  4. ADRIACIN [Suspect]
     Active Substance: DOXORUBICIN HYDROCHLORIDE
     Indication: OSTEOSARCOMA
     Dosage: 41 MG, QD
     Route: 042
     Dates: start: 20161031, end: 20161101
  5. ADRIACIN [Suspect]
     Active Substance: DOXORUBICIN HYDROCHLORIDE
     Dosage: 39 MG, QD
     Route: 042
     Dates: start: 20161212, end: 20161213
  6. CISPLATIN. [Concomitant]
     Active Substance: CISPLATIN
     Dosage: 159 MG, QD
     Route: 042
     Dates: start: 20170306, end: 20170306
  7. G-LASTA [Suspect]
     Active Substance: PEGFILGRASTIM
     Indication: GRANULOCYTOPENIA
     Dosage: 3.6 MG, QD
     Route: 058
     Dates: start: 20170310, end: 20170310
  8. G-LASTA [Suspect]
     Active Substance: PEGFILGRASTIM
     Dosage: 3.6 MG, QD
     Route: 058
     Dates: start: 20161221, end: 20161221
  9. NEDAPLATIN [Concomitant]
     Active Substance: NEDAPLATIN
     Indication: OSTEOSARCOMA
     Dosage: UNK
     Route: 041
  10. GRAN [Suspect]
     Active Substance: FILGRASTIM
     Dosage: 150 MUG, QD
     Route: 042
     Dates: start: 20161216, end: 20161216
  11. ADRIACIN [Suspect]
     Active Substance: DOXORUBICIN HYDROCHLORIDE
     Dosage: 39 MG, QD
     Route: 042
     Dates: start: 20170306, end: 20170307
  12. NEUTROGIN [Concomitant]
     Active Substance: LENOGRASTIM
     Indication: GRANULOCYTOPENIA
     Dosage: 200 MUG, QD
     Route: 042
     Dates: start: 20161217, end: 20161217
  13. CISPLATIN. [Concomitant]
     Active Substance: CISPLATIN
     Indication: OSTEOSARCOMA
     Dosage: 164 MG, QD
     Route: 042
     Dates: start: 20161031, end: 20161031

REACTIONS (4)
  - Bone marrow failure [Recovered/Resolved]
  - Anaphylactic shock [Recovered/Resolved]
  - Anaphylactic shock [Recovered/Resolved]
  - Anaphylactic shock [Recovered/Resolved]

NARRATIVE: CASE EVENT DATE: 20161104
